FAERS Safety Report 8111481-4 (Version None)
Quarter: 2012Q1

REPORT INFORMATION
  Report Type: 
  Country: None (occurrence: None)
  Receive Date: 20120203
  Receipt Date: 20120124
  Transmission Date: 20120608
  Serious: Yes (Hospitalization, Other)
  Sender: FDA-Public Use
  Company Number: FR-BRISTOL-MYERS SQUIBB COMPANY-16371015

PATIENT
  Age: 78 Year
  Sex: Female

DRUGS (4)
  1. ACETAMINOPHEN [Suspect]
  2. PLAVIX [Suspect]
     Indication: THROMBOSIS
     Dosage: PLAVIX 75 MG, FILM-COATED TABLET
     Route: 048
     Dates: start: 20110901, end: 20111221
  3. COUMADIN [Suspect]
     Indication: MITRAL VALVE REPLACEMENT
     Route: 048
     Dates: start: 19920101, end: 20111221
  4. TRAMADOL HCL [Suspect]

REACTIONS (6)
  - HAEMOGLOBIN DECREASED [None]
  - INTERNATIONAL NORMALISED RATIO FLUCTUATION [None]
  - CARDIAC VALVE REPLACEMENT COMPLICATION [None]
  - UMBILICAL HAEMATOMA [None]
  - RECTAL HAEMORRHAGE [None]
  - ISCHAEMIC STROKE [None]
